FAERS Safety Report 4720596-X (Version None)
Quarter: 2005Q3

REPORT INFORMATION
  Report Type: 
  Country: None (occurrence: None)
  Receive Date: 20050721
  Receipt Date: 20050714
  Transmission Date: 20060218
  Serious: Yes (Other)
  Sender: FDA-Public Use
  Company Number: US-BRISTOL-MYERS SQUIBB COMPANY-13038112

PATIENT
  Sex: Female

DRUGS (1)
  1. ERBITUX [Suspect]
     Dosage: LOADING DOSE, 400 MG/M2.  INFUSION D/C.

REACTIONS (2)
  - ERYTHEMA [None]
  - RESPIRATORY DISORDER [None]
